FAERS Safety Report 10818168 (Version 3)
Quarter: 2015Q2

REPORT INFORMATION
  Report Type: Spontaneous
  Country: US (occurrence: US)
  Receive Date: 20150218
  Receipt Date: 20150429
  Transmission Date: 20150821
  Serious: No
  Sender: FDA-Public Use
  Company Number: US-GLAXOSMITHKLINE-US2014044263

PATIENT
  Age: 90 Year
  Sex: Male

DRUGS (8)
  1. BREO ELLIPTA [Suspect]
     Active Substance: FLUTICASONE FUROATE\VILANTEROL TRIFENATATE
     Indication: CHRONIC OBSTRUCTIVE PULMONARY DISEASE
     Dosage: UNK
  2. OXYGEN. [Concomitant]
     Active Substance: OXYGEN
  3. BREO ELLIPTA [Suspect]
     Active Substance: FLUTICASONE FUROATE\VILANTEROL TRIFENATATE
     Indication: PNEUMONIA
     Dosage: 1 PUFF(S), QD IN THE EVENING
     Route: 055
     Dates: start: 20141230, end: 201501
  4. ALLOPURINOL. [Concomitant]
     Active Substance: ALLOPURINOL
  5. ALBUTEROL INHALATIONAL POWDER [Concomitant]
     Active Substance: ALBUTEROL
     Route: 055
  6. ANORO ELLIPTA [Suspect]
     Active Substance: UMECLIDINIUM BROMIDE\VILANTEROL TRIFENATATE
     Indication: PNEUMONIA
     Dosage: 1 PUFF(S), QD IN THE MORNING
     Route: 055
     Dates: start: 20141229, end: 201501
  7. ANORO ELLIPTA [Suspect]
     Active Substance: UMECLIDINIUM BROMIDE\VILANTEROL TRIFENATATE
     Indication: CHRONIC OBSTRUCTIVE PULMONARY DISEASE
     Dosage: UNK
  8. SALAMOL INHALER [Concomitant]

REACTIONS (3)
  - Labelled drug-drug interaction medication error [Recovered/Resolved]
  - Drug prescribing error [Unknown]
  - Drug ineffective [Not Recovered/Not Resolved]

NARRATIVE: CASE EVENT DATE: 20141229
